FAERS Safety Report 12492627 (Version 1)
Quarter: 2016Q2

REPORT INFORMATION
  Report Type: Spontaneous
  Country: US (occurrence: US)
  Receive Date: 20160623
  Receipt Date: 20160623
  Transmission Date: 20160815
  Serious: Yes (Other)
  Sender: FDA-Public Use
  Company Number: US-ELI_LILLY_AND_COMPANY-US201606005989

PATIENT
  Sex: Female

DRUGS (16)
  1. ESOMEPRAZOLE [Concomitant]
     Active Substance: ESOMEPRAZOLE
  2. ARIPIPRAZOLE. [Concomitant]
     Active Substance: ARIPIPRAZOLE
  3. AMITRIPTYLINE [Concomitant]
     Active Substance: AMITRIPTYLINE
  4. HUMALOG [Suspect]
     Active Substance: INSULIN LISPRO
     Dosage: UNK, UNKNOWN
     Route: 065
  5. DILTIAZEM [Concomitant]
     Active Substance: DILTIAZEM
  6. PENTASA [Concomitant]
     Active Substance: MESALAMINE
  7. RANITIDINE. [Concomitant]
     Active Substance: RANITIDINE
  8. ATORVASTATIN [Concomitant]
     Active Substance: ATORVASTATIN
  9. LESCOL [Concomitant]
     Active Substance: FLUVASTATIN SODIUM
  10. ENALAPRIL [Concomitant]
     Active Substance: ENALAPRIL
  11. AMLODIPINE [Concomitant]
     Active Substance: AMLODIPINE BESYLATE
  12. TOUJEO [Concomitant]
     Active Substance: INSULIN GLARGINE
  13. DULOXETINE. [Concomitant]
     Active Substance: DULOXETINE
  14. ZOLPIDEM TARTATE [Concomitant]
     Active Substance: ZOLPIDEM TARTRATE
  15. HUMALOG [Suspect]
     Active Substance: INSULIN LISPRO
     Indication: PRODUCT USED FOR UNKNOWN INDICATION
     Dosage: UNK, UNKNOWN
     Route: 065
     Dates: start: 2013
  16. LANTUS [Concomitant]
     Active Substance: INSULIN GLARGINE

REACTIONS (4)
  - Vision blurred [Unknown]
  - Neuropathy peripheral [Unknown]
  - Ovarian cancer stage I [Unknown]
  - Blood glucose increased [Unknown]
